FAERS Safety Report 9877154 (Version 4)
Quarter: 2015Q2

REPORT INFORMATION
  Report Type: Spontaneous
  Country: US (occurrence: US)
  Receive Date: 20140206
  Receipt Date: 20150521
  Transmission Date: 20150821
  Serious: Yes (Other)
  Sender: FDA-Public Use
  Company Number: US-ENDO PHARMACEUTICALS INC.-HYDR20140006

PATIENT
  Age: 69 Year
  Sex: Female
  Weight: 62.65 kg

DRUGS (16)
  1. DYAZIDE [Concomitant]
     Active Substance: HYDROCHLOROTHIAZIDE\TRIAMTERENE
     Indication: OEDEMA
     Route: 048
     Dates: start: 1994, end: 2014
  2. HYDROXYZINE HYDROCHLORIDE TABLETS 50MG [Concomitant]
     Active Substance: HYDROXYZINE HYDROCHLORIDE
     Indication: BLADDER PAIN
  3. HYDROCODONE [Concomitant]
     Active Substance: HYDROCODONE
     Indication: BLADDER SPASM
     Route: 048
  4. HYDROCODONE [Concomitant]
     Active Substance: HYDROCODONE
     Indication: BLADDER PAIN
  5. DGL LICORICE [Concomitant]
     Indication: DYSPEPSIA
     Route: 048
     Dates: start: 200908
  6. WESTHROID [Concomitant]
     Active Substance: THYROGLOBULIN
     Indication: HYPOTHYROIDISM
     Route: 048
  7. HYDROCORTISONE TABLETS [Suspect]
     Active Substance: HYDROCORTISONE
     Route: 048
     Dates: start: 201303, end: 2013
  8. CORTEF [Concomitant]
     Active Substance: HYDROCORTISONE
     Indication: SECONDARY ADRENOCORTICAL INSUFFICIENCY
     Route: 048
     Dates: start: 20131123
  9. NATURE-THROID [Concomitant]
     Active Substance: THYROID, PORCINE
     Indication: HYPOTHYROIDISM
     Route: 048
  10. HYDROCORTISONE TABLETS [Suspect]
     Active Substance: HYDROCORTISONE
     Route: 048
     Dates: start: 2013, end: 201311
  11. CORTEF [Concomitant]
     Active Substance: HYDROCORTISONE
     Route: 048
     Dates: start: 20131226
  12. HYDROXYZINE HYDROCHLORIDE TABLETS 50MG [Concomitant]
     Active Substance: HYDROXYZINE HYDROCHLORIDE
     Indication: BLADDER SPASM
     Route: 048
  13. HYDROCORTISONE TABLETS [Suspect]
     Active Substance: HYDROCORTISONE
     Indication: SECONDARY ADRENOCORTICAL INSUFFICIENCY
     Route: 048
     Dates: start: 20131223, end: 20131226
  14. HYDROCORTISONE TABLETS [Suspect]
     Active Substance: HYDROCORTISONE
     Route: 048
     Dates: start: 2013, end: 2013
  15. ESTROGEN [Concomitant]
     Active Substance: ESTRONE\SUS SCROFA OVARY
     Indication: HORMONE REPLACEMENT THERAPY
     Route: 048
  16. TUMS [Concomitant]
     Active Substance: CALCIUM CARBONATE
     Indication: DYSPEPSIA
     Route: 048
     Dates: start: 200908

REACTIONS (26)
  - Condition aggravated [Unknown]
  - Chest pain [Recovered/Resolved]
  - Pain [Unknown]
  - Dissociation [Unknown]
  - Suicidal ideation [Not Recovered/Not Resolved]
  - Condition aggravated [Recovered/Resolved]
  - Personality change [Unknown]
  - Cardiac disorder [Not Recovered/Not Resolved]
  - Fall [Recovered/Resolved]
  - Foot fracture [Recovered/Resolved]
  - Feeling jittery [Unknown]
  - Mood swings [Unknown]
  - Hiatus hernia [Recovering/Resolving]
  - Tinnitus [Unknown]
  - Depression [Unknown]
  - Drug ineffective [Recovered/Resolved]
  - Tremor [Recovering/Resolving]
  - Condition aggravated [Unknown]
  - Dyspepsia [Recovered/Resolved]
  - Glossodynia [Unknown]
  - Colitis microscopic [Not Recovered/Not Resolved]
  - Blindness [Recovered/Resolved]
  - Haematocrit abnormal [Unknown]
  - Adrenocortical insufficiency acute [Recovered/Resolved]
  - Condition aggravated [Not Recovered/Not Resolved]
  - Flushing [Unknown]

NARRATIVE: CASE EVENT DATE: 2012
